FAERS Safety Report 16159744 (Version 2)
Quarter: 2023Q4

REPORT INFORMATION
  Report Type: Report from Study
  Country: US (occurrence: US)
  Receive Date: 20190404
  Receipt Date: 20231218
  Transmission Date: 20240110
  Serious: Yes (Other)
  Sender: FDA-Public Use
  Company Number: US-TAKEDA-2019TUS018574

PATIENT
  Age: 62 Year
  Sex: Female

DRUGS (2)
  1. BRIGATINIB [Suspect]
     Active Substance: BRIGATINIB
     Indication: Non-small cell lung cancer
     Dosage: UNK UNK, QD
     Route: 048
     Dates: start: 201708
  2. BRIGATINIB [Suspect]
     Active Substance: BRIGATINIB
     Indication: Lung neoplasm malignant
     Dosage: 180 MILLIGRAM, QD
     Route: 048
     Dates: start: 20210628

REACTIONS (3)
  - Bone cancer [Unknown]
  - Photosensitivity reaction [Unknown]
  - Arteritis [Unknown]

NARRATIVE: CASE EVENT DATE: 20180901
